FAERS Safety Report 19278508 (Version 1)
Quarter: 2021Q2

REPORT INFORMATION
  Report Type: Report from Study
  Country: None (occurrence: US)
  Receive Date: 20210520
  Receipt Date: 20210520
  Transmission Date: 20210717
  Serious: Yes (Hospitalization, Other)
  Sender: FDA-Public Use
  Company Number: US-ABBVIE-21K-163-3912091-00

PATIENT
  Age: 85 Year
  Sex: Female

DRUGS (1)
  1. HUMIRA [Suspect]
     Active Substance: ADALIMUMAB
     Indication: PSORIATIC ARTHROPATHY
     Dosage: CITRATE FREE
     Route: 058
     Dates: start: 2018

REACTIONS (7)
  - Cerebrovascular accident [Recovering/Resolving]
  - Fall [Unknown]
  - Memory impairment [Not Recovered/Not Resolved]
  - Blindness unilateral [Recovering/Resolving]
  - Hip fracture [Recovering/Resolving]
  - Staphylococcal infection [Recovering/Resolving]
  - Diplopia [Recovering/Resolving]

NARRATIVE: CASE EVENT DATE: 202012
